FAERS Safety Report 18571684 (Version 9)
Quarter: 2021Q4

REPORT INFORMATION
  Report Type: Report from Study
  Country: BR (occurrence: BR)
  Receive Date: 20201202
  Receipt Date: 20211217
  Transmission Date: 20220303
  Serious: Yes (Life-Threatening, Hospitalization, Other)
  Sender: FDA-Public Use
  Company Number: BR-TAKEDA-BR202015740

PATIENT
  Sex: Male
  Weight: 35 kg

DRUGS (5)
  1. IDURSULFASE [Suspect]
     Active Substance: IDURSULFASE
     Indication: Mucopolysaccharidosis II
     Dosage: 3 DOSAGE FORM, 1/WEEK
     Route: 065
  2. IDURSULFASE [Suspect]
     Active Substance: IDURSULFASE
     Dosage: UNK
     Route: 065
     Dates: start: 20211111
  3. IDURSULFASE [Suspect]
     Active Substance: IDURSULFASE
     Dosage: 3 DOSAGE FORM
     Route: 042
     Dates: start: 2015
  4. QUETIAPINE [Concomitant]
     Active Substance: QUETIAPINE
     Indication: Sedative therapy
     Dosage: 100 MILLIGRAM, QD
     Route: 065
  5. QUETIAPINE [Concomitant]
     Active Substance: QUETIAPINE
     Indication: Insomnia

REACTIONS (25)
  - Adverse event [Recovered/Resolved]
  - Arthropathy [Unknown]
  - Gait disturbance [Not Recovered/Not Resolved]
  - Mastication disorder [Recovering/Resolving]
  - Blood pressure decreased [Recovering/Resolving]
  - Malaise [Not Recovered/Not Resolved]
  - Poor venous access [Unknown]
  - Drug ineffective [Recovering/Resolving]
  - Gait inability [Not Recovered/Not Resolved]
  - Musculoskeletal stiffness [Unknown]
  - Irritability [Unknown]
  - Poor quality sleep [Unknown]
  - Decreased immune responsiveness [Unknown]
  - Illness [Unknown]
  - Nervousness [Unknown]
  - Agitation [Unknown]
  - Platelet count decreased [Not Recovered/Not Resolved]
  - Ear infection [Unknown]
  - Diarrhoea [Not Recovered/Not Resolved]
  - Pyrexia [Recovering/Resolving]
  - Dyspnoea [Not Recovered/Not Resolved]
  - Nervous system disorder [Unknown]
  - Product availability issue [Unknown]
  - Inappropriate schedule of product administration [Unknown]
  - Product dose omission issue [Unknown]

NARRATIVE: CASE EVENT DATE: 20190101
